FAERS Safety Report 20006517 (Version 3)
Quarter: 2022Q1

REPORT INFORMATION
  Report Type: Spontaneous
  Country: JP (occurrence: JP)
  Receive Date: 20211028
  Receipt Date: 20220209
  Transmission Date: 20220423
  Serious: Yes (Other)
  Sender: FDA-Public Use
  Company Number: JP-NOVARTISPH-NVSJ2021JP017342

PATIENT
  Sex: Male

DRUGS (10)
  1. CYCLOSPORINE [Suspect]
     Active Substance: CYCLOSPORINE
     Indication: Foetal exposure during pregnancy
     Dosage: UNK
     Route: 064
  2. CYCLOSPORINE [Suspect]
     Active Substance: CYCLOSPORINE
     Dosage: MATERNAL DOSE: INCREASED
     Route: 064
  3. CYCLOSPORINE [Suspect]
     Active Substance: CYCLOSPORINE
     Dosage: MATERNAL DOSE: INCREASED
     Route: 064
  4. CYCLOSPORINE [Suspect]
     Active Substance: CYCLOSPORINE
     Dosage: MATERNAL DOSE: 350 MG
     Route: 064
  5. CYCLOSPORINE [Suspect]
     Active Substance: CYCLOSPORINE
     Dosage: MATERNAL DOSE: REDUCED
     Route: 064
  6. PREDNISOLONE [Suspect]
     Active Substance: PREDNISOLONE
     Indication: Foetal exposure during pregnancy
     Dosage: MATERNAL DOSE: 50 MG
     Route: 064
  7. PREDNISOLONE [Suspect]
     Active Substance: PREDNISOLONE
     Dosage: MATERNAL DOSE: TAPERED
     Route: 064
  8. PREDNISOLONE [Suspect]
     Active Substance: PREDNISOLONE
     Dosage: MATERNAL DOSE: TAPERED
     Route: 064
  9. PREDNISOLONE [Suspect]
     Active Substance: PREDNISOLONE
     Dosage: MATERNAL DOSE: TAPERED
     Route: 064
  10. PREDNISOLONE [Suspect]
     Active Substance: PREDNISOLONE
     Dosage: MATERNAL DOSE: 20 MG
     Route: 064

REACTIONS (3)
  - Foetal growth restriction [Unknown]
  - Premature baby [Unknown]
  - Foetal exposure during pregnancy [Unknown]
